FAERS Safety Report 7647347-3 (Version None)
Quarter: 2011Q3

REPORT INFORMATION
  Report Type: 
  Country: None (occurrence: None)
  Receive Date: 20110801
  Receipt Date: 20110726
  Transmission Date: 20111222
  Serious: Yes (Death, Other)
  Sender: FDA-Public Use
  Company Number: EC-ROCHE-792351

PATIENT
  Sex: Female
  Weight: 79.4 kg

DRUGS (2)
  1. CALCIUM ACETATE [Concomitant]
     Indication: OSTEOPOROSIS
     Dosage: DOSE: 600 UI
     Route: 048
     Dates: start: 20070101
  2. BONIVA [Suspect]
     Indication: OSTEOPOROSIS
     Route: 048
     Dates: start: 20090917

REACTIONS (5)
  - CARDIO-RESPIRATORY ARREST [None]
  - DIARRHOEA [None]
  - ABDOMINAL PAIN [None]
  - VOMITING [None]
  - FLUID IMBALANCE [None]
